FAERS Safety Report 14118816 (Version 1)
Quarter: 2017Q4

REPORT INFORMATION
  Report Type: Spontaneous
  Country: US (occurrence: US)
  Receive Date: 20171023
  Receipt Date: 20171023
  Transmission Date: 20180321
  Serious: No
  Sender: FDA-Public Use
  Company Number: US-ALLERGAN-1717315US

PATIENT
  Sex: Female

DRUGS (1)
  1. LINZESS [Suspect]
     Active Substance: LINACLOTIDE
     Indication: CONSTIPATION
     Dosage: 290 ?G, QD
     Route: 065

REACTIONS (7)
  - Constipation [Unknown]
  - Blood glucose decreased [Unknown]
  - Drug ineffective [Unknown]
  - Abdominal pain upper [Unknown]
  - Fatigue [Unknown]
  - Wrong technique in product usage process [Unknown]
  - Diarrhoea [Unknown]
